FAERS Safety Report 5095404-0 (Version None)
Quarter: 2006Q3

REPORT INFORMATION
  Report Type: 
  Country: None (occurrence: None)
  Receive Date: 20060901
  Receipt Date: 20060828
  Transmission Date: 20061208
  Serious: Yes (Other)
  Sender: FDA-Public Use
  Company Number: FR-BRISTOL-MYERS SQUIBB COMPANY-13490743

PATIENT
  Age: 16 Year
  Sex: Male

DRUGS (6)
  1. IFOSFAMIDE [Suspect]
     Indication: SARCOMA
     Route: 042
  2. VINCRISTINE [Suspect]
     Indication: SARCOMA
  3. DACTINOMYCIN [Suspect]
     Indication: SARCOMA
  4. DEXAMETHASONE [Concomitant]
  5. ALIZAPRIDE [Concomitant]
  6. ONDANSETRON HCL [Concomitant]

REACTIONS (1)
  - HYPOMANIA [None]
